FAERS Safety Report 16133620 (Version 1)
Quarter: 2019Q1

REPORT INFORMATION
  Report Type: Spontaneous
  Country: US (occurrence: US)
  Receive Date: 20190329
  Receipt Date: 20190329
  Transmission Date: 20190418
  Serious: No
  Sender: FDA-Public Use
  Company Number: US-ZYDUS-020827

PATIENT
  Sex: Female

DRUGS (2)
  1. SUMATRIPTAN/SUMATRIPTAN SUCCINATE/SUMATRIPTAN SULFATE [Concomitant]
     Indication: MIGRAINE
     Dosage: 6 MG/0.5 ML
     Route: 065
  2. TRAMADOL. [Suspect]
     Active Substance: TRAMADOL
     Indication: MIGRAINE
     Route: 065

REACTIONS (1)
  - Drug ineffective [Unknown]
